FAERS Safety Report 24080389 (Version 6)
Quarter: 2024Q4

REPORT INFORMATION
  Report Type: Spontaneous
  Country: US (occurrence: US)
  Receive Date: 20240711
  Receipt Date: 20241028
  Transmission Date: 20250114
  Serious: Yes (Other)
  Sender: PFIZER
  Company Number: US-PFIZER INC-202400209993

PATIENT
  Age: 71 Year
  Sex: Female
  Weight: 81.65 kg

DRUGS (7)
  1. PREMARIN [Suspect]
     Active Substance: ESTROGENS, CONJUGATED
     Indication: Menopause
     Dosage: TAKE ONE TABLET BY MOUTH DAILY
     Route: 048
     Dates: start: 20240130
  2. PREMARIN [Suspect]
     Active Substance: ESTROGENS, CONJUGATED
     Indication: Night sweats
     Dosage: TAKE 1 TABLET BY MOUTH IN THE MORNING
     Route: 048
     Dates: end: 202407
  3. PREMARIN [Suspect]
     Active Substance: ESTROGENS, CONJUGATED
     Indication: Hormone replacement therapy
  4. PREMARIN [Suspect]
     Active Substance: ESTROGENS, CONJUGATED
     Indication: Hot flush
  5. ETHACRYNIC ACID [Concomitant]
     Active Substance: ETHACRYNIC ACID
     Indication: Blood pressure abnormal
     Dosage: 25 MG, 1X/DAY
     Route: 048
  6. MEDROXYPROGESTERONE [Concomitant]
     Active Substance: MEDROXYPROGESTERONE
     Dosage: 2.5 MG
     Dates: end: 202407
  7. MEDROXYPROGESTERONE [Concomitant]
     Active Substance: MEDROXYPROGESTERONE
     Dosage: TAKE ONE TABLET BY MOUTH EVERY MORNING
     Route: 048
     Dates: end: 202407

REACTIONS (20)
  - Postmenopausal haemorrhage [Recovered/Resolved]
  - Drug ineffective [Not Recovered/Not Resolved]
  - Weight decreased [Not Recovered/Not Resolved]
  - Fatigue [Not Recovered/Not Resolved]
  - Headache [Unknown]
  - Blister [Not Recovered/Not Resolved]
  - Skin atrophy [Not Recovered/Not Resolved]
  - Decreased appetite [Not Recovered/Not Resolved]
  - Ear infection [Unknown]
  - Peripheral swelling [Unknown]
  - Myalgia [Unknown]
  - Rash [Unknown]
  - Bone pain [Unknown]
  - Arthralgia [Unknown]
  - Brain fog [Unknown]
  - Back pain [Unknown]
  - Sluggishness [Unknown]
  - Weight fluctuation [Not Recovered/Not Resolved]
  - Poor quality product administered [Unknown]
  - Product taste abnormal [Unknown]

NARRATIVE: CASE EVENT DATE: 20240101
